FAERS Safety Report 10345989 (Version 2)
Quarter: 2014Q3

REPORT INFORMATION
  Report Type: Spontaneous
  Country: BR (occurrence: BR)
  Receive Date: 20140728
  Receipt Date: 20140806
  Transmission Date: 20150326
  Serious: Yes (Hospitalization, Other)
  Sender: FDA-Public Use
  Company Number: BR-PFIZER INC-2014206654

PATIENT
  Age: 82 Year
  Sex: Female
  Weight: 69 kg

DRUGS (7)
  1. MOTILIUM [Concomitant]
     Active Substance: DOMPERIDONE
     Indication: HIATUS HERNIA
     Dosage: 1 TABLET IN THE MORNING (WHEN FASTING)
     Dates: start: 2010
  2. ANASTROZOLE. [Concomitant]
     Active Substance: ANASTROZOLE
     Indication: BREAST CANCER
  3. ACETYLSALICYLIC ACID [Concomitant]
     Active Substance: ASPIRIN
     Dosage: 1 TABLET PER DAY
  4. AMIODARONE [Concomitant]
     Active Substance: AMIODARONE
     Dosage: ONE TABLET PER DAY (EXCEPT ON SATURDAY AND SUNDAY)
  5. LIPITOR [Suspect]
     Active Substance: ATORVASTATIN CALCIUM
     Dosage: 20 MG, 1X/DAY
     Route: 048
  6. LIPITOR [Suspect]
     Active Substance: ATORVASTATIN CALCIUM
     Indication: BLOOD CHOLESTEROL INCREASED
     Dosage: 10 MG, 1X/DAY
     Route: 048
     Dates: start: 20110721, end: 2012
  7. ANASTROZOLE. [Concomitant]
     Active Substance: ANASTROZOLE
     Indication: PROPHYLAXIS
     Dosage: 1 TABLET, 1X/DAY
     Dates: start: 201305

REACTIONS (4)
  - Mitral valve prolapse [Unknown]
  - Arterial injury [Unknown]
  - Arrhythmia [Unknown]
  - Atrial fibrillation [Unknown]
